FAERS Safety Report 15802435 (Version 1)
Quarter: 2019Q1

REPORT INFORMATION
  Report Type: Spontaneous
  Country: NO (occurrence: NO)
  Receive Date: 20190109
  Receipt Date: 20190109
  Transmission Date: 20190417
  Serious: Yes (Hospitalization)
  Sender: FDA-Public Use
  Company Number: NO-GLAXOSMITHKLINE-NO2019GSK000032

PATIENT
  Sex: Female

DRUGS (3)
  1. LAMICTAL [Suspect]
     Active Substance: LAMOTRIGINE
     Indication: SCHIZOAFFECTIVE DISORDER
     Dosage: 200 MG, QD
     Dates: start: 20080115, end: 20151215
  2. SEROQUEL [Concomitant]
     Active Substance: QUETIAPINE FUMARATE
     Indication: PRODUCT USED FOR UNKNOWN INDICATION
     Dosage: 300 MG, QD
  3. LAMICTAL [Suspect]
     Active Substance: LAMOTRIGINE
     Dosage: 200 MG, UNK

REACTIONS (8)
  - Disturbance in attention [Unknown]
  - Depression [Unknown]
  - Amnesia [Unknown]
  - Product use in unapproved indication [Unknown]
  - Thinking abnormal [Unknown]
  - Pain [Unknown]
  - Psychotic disorder [Unknown]
  - Off label use [Unknown]
